FAERS Safety Report 20566478 (Version 16)
Quarter: 2025Q2

REPORT INFORMATION
  Report Type: Report from Study
  Country: CA (occurrence: CA)
  Receive Date: 20220308
  Receipt Date: 20250502
  Transmission Date: 20250717
  Serious: Yes (Hospitalization, Other)
  Sender: TAKEDA
  Company Number: CA-TAKEDA-2022TUS014534

PATIENT
  Sex: Female

DRUGS (14)
  1. VEDOLIZUMAB [Suspect]
     Active Substance: VEDOLIZUMAB
     Indication: Colitis ulcerative
  2. VEDOLIZUMAB [Suspect]
     Active Substance: VEDOLIZUMAB
     Dosage: 300 MILLIGRAM, Q4WEEKS
     Dates: start: 20220609
  3. VEDOLIZUMAB [Suspect]
     Active Substance: VEDOLIZUMAB
  4. VEDOLIZUMAB [Suspect]
     Active Substance: VEDOLIZUMAB
  5. VEDOLIZUMAB [Suspect]
     Active Substance: VEDOLIZUMAB
     Dosage: 300 MILLIGRAM, Q4WEEKS
     Dates: start: 20240705
  6. VEDOLIZUMAB [Suspect]
     Active Substance: VEDOLIZUMAB
  7. VEDOLIZUMAB [Suspect]
     Active Substance: VEDOLIZUMAB
     Dosage: 300 MILLIGRAM, Q4WEEKS
  8. VEDOLIZUMAB [Suspect]
     Active Substance: VEDOLIZUMAB
     Dosage: 300 MILLIGRAM, Q4WEEKS
     Dates: end: 20250412
  9. VEDOLIZUMAB [Suspect]
     Active Substance: VEDOLIZUMAB
     Indication: Colitis ulcerative
     Dosage: 108 MILLIGRAM, Q2WEEKS
     Dates: start: 20230204
  10. Salofalk [Concomitant]
     Dosage: UNK UNK, QD
  11. VENLAFAXINE [Concomitant]
     Active Substance: VENLAFAXINE HYDROCHLORIDE
  12. GABAPENTIN [Concomitant]
     Active Substance: GABAPENTIN
  13. LEVOMEPROMAZINE [Concomitant]
     Active Substance: LEVOMEPROMAZINE
  14. PRAZOSIN [Concomitant]
     Active Substance: PRAZOSIN

REACTIONS (17)
  - Clostridium difficile colitis [Recovered/Resolved]
  - Abdominal pain upper [Unknown]
  - Depression [Not Recovered/Not Resolved]
  - Colitis ulcerative [Unknown]
  - Mental disorder [Recovering/Resolving]
  - Suicidal ideation [Unknown]
  - Pallor [Recovering/Resolving]
  - Injury [Recovering/Resolving]
  - Stress [Recovering/Resolving]
  - Bacterial vulvovaginitis [Recovering/Resolving]
  - Flat affect [Not Recovered/Not Resolved]
  - Anxiety [Unknown]
  - Poor venous access [Recovered/Resolved]
  - Drug ineffective [Unknown]
  - Constipation [Not Recovered/Not Resolved]
  - Nausea [Not Recovered/Not Resolved]
  - Pain [Unknown]
